FAERS Safety Report 18438064 (Version 4)
Quarter: 2021Q4

REPORT INFORMATION
  Report Type: Spontaneous
  Country: None (occurrence: US)
  Receive Date: 20201029
  Receipt Date: 20211202
  Transmission Date: 20220304
  Serious: No
  Sender: FDA-Public Use
  Company Number: US-AKCEA THERAPEUTICS-2020IS001419

PATIENT
  Age: 63 Year
  Sex: Female

DRUGS (2)
  1. TEGSEDI [Suspect]
     Active Substance: INOTERSEN SODIUM
     Indication: Hereditary neuropathic amyloidosis
     Route: 058
     Dates: start: 20200509
  2. DEVICE [Suspect]
     Active Substance: DEVICE

REACTIONS (16)
  - Urine leukocyte esterase positive [Unknown]
  - Urinary sediment present [Unknown]
  - Bacterial test positive [Unknown]
  - Urine abnormality [Unknown]
  - Urinary occult blood positive [Unknown]
  - Nitrite urine present [Not Recovered/Not Resolved]
  - White blood cells urine positive [Unknown]
  - Red blood cells urine positive [Unknown]
  - Urine ketone body present [Unknown]
  - Protein urine present [Unknown]
  - Alanine aminotransferase abnormal [Unknown]
  - Crystal urine present [Unknown]
  - Urinary casts [Unknown]
  - Platelet count increased [Recovered/Resolved]
  - SARS-CoV-2 test positive [Unknown]
  - COVID-19 [Unknown]

NARRATIVE: CASE EVENT DATE: 20200101
